FAERS Safety Report 12705294 (Version 3)
Quarter: 2016Q3

REPORT INFORMATION
  Report Type: Spontaneous
  Country: DE (occurrence: DE)
  Receive Date: 20160831
  Receipt Date: 20160916
  Transmission Date: 20161109
  Serious: Yes (Hospitalization, Other)
  Sender: FDA-Public Use
  Company Number: DE-BEH-2016073127

PATIENT
  Age: 56 Year
  Sex: Male
  Weight: 103 kg

DRUGS (3)
  1. PRIVIGEN [Suspect]
     Active Substance: HUMAN IMMUNOGLOBULIN G
     Indication: NERVOUS SYSTEM DISORDER
     Dosage: 40 G, TOT, INFUSION RATE: 10 G PER HOUR
     Route: 065
     Dates: start: 20160713
  2. PRIVIGEN [Suspect]
     Active Substance: HUMAN IMMUNOGLOBULIN G
     Dosage: 40 G, TOT, INFUSION RATE: 10 G PER HOUR
     Route: 065
     Dates: start: 20160714
  3. PRIVIGEN [Suspect]
     Active Substance: HUMAN IMMUNOGLOBULIN G
     Dosage: 40 G, TOT, INFUSION RATE: 10 G PER HOUR
     Route: 065
     Dates: start: 20160715

REACTIONS (12)
  - Pain in jaw [Recovering/Resolving]
  - Rash pruritic [Recovering/Resolving]
  - Restlessness [Recovering/Resolving]
  - Pain [Recovering/Resolving]
  - Coronary artery occlusion [Recovering/Resolving]
  - Hypertension [Recovering/Resolving]
  - Eructation [Recovering/Resolving]
  - Myocardial infarction [Recovering/Resolving]
  - Chest pain [Recovering/Resolving]
  - Coronary artery thrombosis [Recovering/Resolving]
  - Neck pain [Recovering/Resolving]
  - Dyspnoea [Recovering/Resolving]

NARRATIVE: CASE EVENT DATE: 20160801
